FAERS Safety Report 19658419 (Version 12)
Quarter: 2024Q3

REPORT INFORMATION
  Report Type: Report from Study
  Country: US (occurrence: US)
  Receive Date: 20210805
  Receipt Date: 20240912
  Transmission Date: 20241016
  Serious: Yes (Life-Threatening, Other)
  Sender: AUROBINDO
  Company Number: US-AUROBINDO-AUR-APL-2021-033854

PATIENT
  Age: 54 Year
  Sex: Female
  Weight: 73.9 kg

DRUGS (4)
  1. BELINOSTAT [Suspect]
     Active Substance: BELINOSTAT
     Indication: Acute myeloid leukaemia
     Dosage: 4000 MILLIGRAM
     Route: 065
     Dates: start: 20191007
  2. BELINOSTAT [Suspect]
     Active Substance: BELINOSTAT
     Dosage: 4000 MILLIGRAM
     Route: 065
     Dates: start: 20191028
  3. PEVONEDISTAT HYDROCHLORIDE [Suspect]
     Active Substance: PEVONEDISTAT HYDROCHLORIDE
     Indication: Product used for unknown indication
     Dosage: 60 MILLIGRAM
     Route: 065
     Dates: start: 20191007
  4. PEVONEDISTAT HYDROCHLORIDE [Suspect]
     Active Substance: PEVONEDISTAT HYDROCHLORIDE
     Dosage: 60 MILLIGRAM
     Route: 065
     Dates: start: 20191028

REACTIONS (13)
  - Platelet count decreased [Unknown]
  - White blood cell count decreased [Unknown]
  - Neutrophil count decreased [Unknown]
  - Hypokalaemia [Unknown]
  - Anaemia [Unknown]
  - Hypoalbuminaemia [Unknown]
  - Hypertension [Unknown]
  - Rhinitis allergic [Unknown]
  - Sinus tachycardia [Unknown]
  - Haematuria [Unknown]
  - Hypomagnesaemia [Unknown]
  - Subcutaneous abscess [Unknown]
  - Hypernatraemia [Unknown]

NARRATIVE: CASE EVENT DATE: 20191009
